FAERS Safety Report 6919965-9 (Version None)
Quarter: 2010Q3

REPORT INFORMATION
  Report Type: 
  Country: None (occurrence: None)
  Receive Date: 20100811
  Receipt Date: 20100805
  Transmission Date: 20110219
  Serious: Yes (Hospitalization)
  Sender: FDA-Public Use
  Company Number: PHHO2010DE11059

PATIENT
  Sex: Female
  Weight: 78 kg

DRUGS (2)
  1. AFINITOR [Suspect]
     Indication: BREAST CANCER
     Dosage: 5 MG, QD
     Route: 048
     Dates: start: 20100429, end: 20100720
  2. TAXOL [Suspect]
     Indication: HEPATIC CANCER METASTATIC
     Dosage: 148 MG, QW
     Route: 042
     Dates: start: 20100506

REACTIONS (6)
  - BODY TEMPERATURE INCREASED [None]
  - DECREASED APPETITE [None]
  - FATIGUE [None]
  - GENERAL PHYSICAL HEALTH DETERIORATION [None]
  - INFECTION [None]
  - PROTEIN URINE PRESENT [None]
